FAERS Safety Report 4863296-8 (Version None)
Quarter: 2005Q4

REPORT INFORMATION
  Report Type: 
  Country: None (occurrence: None)
  Receive Date: 20051222
  Receipt Date: 20051220
  Transmission Date: 20060501
  Serious: Yes (Hospitalization)
  Sender: FDA-Public Use
  Company Number: US-BOEHRINGER INGELHEIM PHARMACEUTICALS, INC.-2005-BP-21630BP

PATIENT
  Age: 35 Year
  Sex: Male

DRUGS (9)
  1. MOBIC [Suspect]
     Indication: ARTHRITIS
     Route: 048
  2. MOBIC [Suspect]
     Indication: NECK PAIN
  3. LORTAB [Concomitant]
  4. PEPCID [Concomitant]
  5. GLUCOSAMINE [Concomitant]
  6. VITAMIN [Concomitant]
  7. LEXAPRO [Concomitant]
  8. ZETIA [Concomitant]
  9. GEMFIBROZIL [Concomitant]

REACTIONS (3)
  - EXTRADURAL HAEMATOMA [None]
  - PROCEDURAL COMPLICATION [None]
  - SPINAL EPIDURAL HAEMORRHAGE [None]
